FAERS Safety Report 5931226-3 (Version None)
Quarter: 2008Q4

REPORT INFORMATION
  Report Type: 
  Country: None (occurrence: None)
  Receive Date: 20081023
  Receipt Date: 20081007
  Transmission Date: 20090506
  Serious: Yes (Hospitalization, Other)
  Sender: FDA-Public Use
  Company Number: 000#8#2008-00191

PATIENT
  Age: 51 Year
  Sex: Male

DRUGS (3)
  1. NITROGLYCERIN [Suspect]
     Indication: ARTERIOSPASM CORONARY
     Dosage: INTRACORONARY,  INTRAVENOUS DRIP
     Route: 022
  2. VERAPAMIL [Suspect]
     Indication: ARTERIOSPASM CORONARY
     Dosage: INTRACORONARY
     Route: 022
  3. DILTIAZEM [Suspect]
     Indication: ARTERIOSPASM CORONARY
     Dosage: INTRAVENOUS DRIP,  ORAL
     Route: 041

REACTIONS (2)
  - POST PROCEDURAL MYOCARDIAL INFARCTION [None]
  - THERAPEUTIC RESPONSE DECREASED [None]
